FAERS Safety Report 15009163 (Version 2)
Quarter: 2018Q2

REPORT INFORMATION
  Report Type: Report from Study
  Country: DE (occurrence: DE)
  Receive Date: 20180614
  Receipt Date: 20180618
  Transmission Date: 20180711
  Serious: Yes (Hospitalization)
  Sender: FDA-Public Use
  Company Number: DE-ROCHE-2137735

PATIENT
  Age: 79 Year
  Sex: Male
  Weight: 76 kg

DRUGS (6)
  1. DOXORUBICIN [Suspect]
     Active Substance: DOXORUBICIN
     Indication: MANTLE CELL LYMPHOMA
     Dosage: LAST DOSE PRIOR TO SAE ON 31/AUG/2016
     Route: 065
     Dates: start: 20160310
  2. CYCLOPHOSPHAMIDE. [Suspect]
     Active Substance: CYCLOPHOSPHAMIDE
     Indication: MANTLE CELL LYMPHOMA
     Dosage: LAST DOSE PRIOR TO SAE ON 31/AUG/2016
     Route: 065
     Dates: start: 20160310
  3. RITUXIMAB. [Suspect]
     Active Substance: RITUXIMAB
     Indication: MANTLE CELL LYMPHOMA
     Dosage: LAST DOSE PRIOR TO SAE ON 09/APR/2018
     Route: 058
     Dates: start: 20160911
  4. RITUXIMAB. [Suspect]
     Active Substance: RITUXIMAB
     Indication: MANTLE CELL LYMPHOMA
     Dosage: LAST DOSE PRIOR TO SAE ON 30/AUG/2016
     Route: 042
     Dates: start: 20160309
  5. VINCRISTINE [Suspect]
     Active Substance: VINCRISTINE
     Indication: MANTLE CELL LYMPHOMA
     Dosage: LAST DOSE PRIOR TO SAE ON 31/AUG/2016
     Route: 065
     Dates: start: 20160310
  6. PREDNISONE. [Suspect]
     Active Substance: PREDNISONE
     Indication: MANTLE CELL LYMPHOMA
     Dosage: LAST DOSE PRIOR TO SAE ON 04/SEP/2016
     Route: 065
     Dates: start: 20160310

REACTIONS (1)
  - Pulmonary embolism [Recovered/Resolved]

NARRATIVE: CASE EVENT DATE: 20180601
